FAERS Safety Report 21909142 (Version 1)
Quarter: 2023Q1

REPORT INFORMATION
  Report Type: Spontaneous
  Country: DE (occurrence: DE)
  Receive Date: 20230125
  Receipt Date: 20230125
  Transmission Date: 20230418
  Serious: Yes (Life-Threatening, Other)
  Sender: FDA-Public Use
  Company Number: DE-DCGMA-22197836

PATIENT
  Age: 87 Year
  Sex: Female
  Weight: 51 kg

DRUGS (6)
  1. DUPIXENT [Suspect]
     Active Substance: DUPILUMAB
     Indication: Product used for unknown indication
     Dosage: 300 DF
     Route: 058
     Dates: start: 2019
  2. METOPROLOL [Concomitant]
     Active Substance: METOPROLOL
  3. NITROLINGUAL [Concomitant]
     Active Substance: NITROGLYCERIN
  4. ASPIRIN [Concomitant]
     Active Substance: ASPIRIN
  5. CANDESARTAN [Concomitant]
     Active Substance: CANDESARTAN
  6. URAPIDIL [Concomitant]
     Active Substance: URAPIDIL

REACTIONS (1)
  - Cerebrovascular accident [Unknown]

NARRATIVE: CASE EVENT DATE: 20210615
